FAERS Safety Report 18971657 (Version 1)
Quarter: 2021Q1

REPORT INFORMATION
  Report Type: Spontaneous
  Country: CN (occurrence: CN)
  Receive Date: 20210304
  Receipt Date: 20210304
  Transmission Date: 20210420
  Serious: Yes (Other)
  Sender: FDA-Public Use
  Company Number: CN-009507513-2103CHN000009

PATIENT
  Age: 77 Year
  Sex: Female

DRUGS (3)
  1. CEFOPERAZONE SODIUM (+) SULBACTAM SODIUM [Suspect]
     Active Substance: CEFOPERAZONE SODIUM\SULBACTAM SODIUM
     Indication: INFECTION
  2. IMIPENEM AND CILASTATIN [Suspect]
     Active Substance: CILASTATIN SODIUM\IMIPENEM
     Indication: INFECTION
     Dosage: UNK
     Dates: start: 20191006
  3. CEFOPERAZONE (+) TAZOBACTAM [Suspect]
     Active Substance: CEFOPERAZONE\TAZOBACTAM SODIUM
     Indication: INFECTION
     Dosage: UNK

REACTIONS (2)
  - Clostridium difficile infection [Recovering/Resolving]
  - Pseudomembranous colitis [Recovering/Resolving]

NARRATIVE: CASE EVENT DATE: 2019
